FAERS Safety Report 14505054 (Version 1)
Quarter: 2018Q1

REPORT INFORMATION
  Report Type: Spontaneous
  Country: US (occurrence: US)
  Receive Date: 20180208
  Receipt Date: 20180208
  Transmission Date: 20180509
  Serious: Yes (Other)
  Sender: FDA-Public Use
  Company Number: US-JNJFOC-20180126746

PATIENT
  Sex: Male
  Weight: 95.26 kg

DRUGS (22)
  1. STELARA [Suspect]
     Active Substance: USTEKINUMAB
     Indication: CROHN^S DISEASE
     Dosage: INITIAL INFUSION
     Dates: start: 20171117
  2. ALBUTEROL SULFATE. [Concomitant]
     Active Substance: ALBUTEROL SULFATE
     Indication: WHEEZING
     Dosage: 1 DOSE EVERY 4-6 HOURS, AS NEEDED
     Route: 055
     Dates: start: 20150331
  3. CENTRUM SILVER [Concomitant]
     Active Substance: MINERALS\VITAMINS
     Route: 048
     Dates: start: 20161229
  4. FLUTICASONE PROPIONATE. [Concomitant]
     Active Substance: FLUTICASONE PROPIONATE
     Dosage: USE 1 SPRAY IN EACH NOSTRIL ONCE DAILY
     Route: 045
     Dates: start: 20150331
  5. ASPIRIN. [Concomitant]
     Active Substance: ASPIRIN
     Route: 065
     Dates: start: 20171113
  6. LANTUS [Concomitant]
     Active Substance: INSULIN GLARGINE
     Route: 058
     Dates: start: 20170413
  7. PROAIR HFA [Concomitant]
     Active Substance: ALBUTEROL SULFATE
     Dosage: INHALE 1 TO 2 PUFFS EVERY 4 - 6 HOURS AS NEEDED
     Route: 055
     Dates: start: 20160209
  8. FUROSEMIDE. [Concomitant]
     Active Substance: FUROSEMIDE
     Route: 048
     Dates: start: 20140829
  9. STELARA [Suspect]
     Active Substance: USTEKINUMAB
     Indication: CROHN^S DISEASE
     Dosage: SUBCUTANEOUS
     Dates: start: 201712
  10. CYCLOBENZAPRINE HCL [Concomitant]
     Active Substance: CYCLOBENZAPRINE HYDROCHLORIDE
     Route: 048
     Dates: start: 20170227
  11. GLIMEPIRIDE. [Concomitant]
     Active Substance: GLIMEPIRIDE
     Route: 048
     Dates: start: 20171221
  12. FERROUS SULFATE. [Suspect]
     Active Substance: FERROUS SULFATE
     Indication: PRODUCT USED FOR UNKNOWN INDICATION
     Dosage: TABLET WITH FOOD
     Route: 048
     Dates: start: 20160630
  13. CLOPIDOGREL BISULFATE. [Concomitant]
     Active Substance: CLOPIDOGREL BISULFATE
     Route: 048
     Dates: start: 20140829
  14. COQ 10 [Concomitant]
     Active Substance: UBIDECARENONE
     Route: 048
     Dates: start: 20140829
  15. PANTOPRAZOLE SODIUM. [Concomitant]
     Active Substance: PANTOPRAZOLE SODIUM
     Route: 048
     Dates: start: 20160923
  16. ATORVASTATIN CALCIUM. [Concomitant]
     Active Substance: ATORVASTATIN CALCIUM
     Dosage: HALF TABLET DAILY
     Route: 048
     Dates: start: 20160630
  17. POTASSIUM CITRATE. [Concomitant]
     Active Substance: POTASSIUM CITRATE
     Route: 048
     Dates: start: 20160923
  18. BISOPROLOL FUMARATE. [Concomitant]
     Active Substance: BISOPROLOL FUMARATE
     Dosage: HALF TABLET DAILY
     Route: 048
     Dates: start: 20150331
  19. LISINOPRIL. [Concomitant]
     Active Substance: LISINOPRIL
     Route: 048
     Dates: start: 20160630
  20. ROPINIROLE. [Concomitant]
     Active Substance: ROPINIROLE
     Dosage: 1 TO 2 TABLETS AT BEDTIME
     Route: 048
     Dates: start: 20160923
  21. TRAZODONE HYDROCHLORIDE. [Concomitant]
     Active Substance: TRAZODONE HYDROCHLORIDE
     Indication: SLEEP DISORDER
     Dosage: 1 TABLET AT BEDTIME AS NEEDED
     Route: 048
     Dates: start: 20160630
  22. LEVOTHYROXINE SODIUM. [Concomitant]
     Active Substance: LEVOTHYROXINE SODIUM
     Route: 048
     Dates: start: 20160923

REACTIONS (3)
  - Faeces discoloured [Unknown]
  - Crohn^s disease [Unknown]
  - Oedema [Unknown]
